FAERS Safety Report 7914465-1 (Version None)
Quarter: 2011Q4

REPORT INFORMATION
  Report Type: 
  Country: None (occurrence: None)
  Receive Date: 20111115
  Receipt Date: 20111107
  Transmission Date: 20120403
  Serious: Yes (Other)
  Sender: FDA-Public Use
  Company Number: BR-SANOFI-AVENTIS-2011SA055905

PATIENT
  Age: 5 Year
  Sex: Male

DRUGS (4)
  1. AUTOPEN 24 [Suspect]
     Indication: DEVICE THERAPY
  2. APIDRA [Suspect]
     Indication: TYPE 1 DIABETES MELLITUS
     Route: 058
     Dates: start: 20110101
  3. LANTUS [Suspect]
     Indication: TYPE 1 DIABETES MELLITUS
     Route: 058
     Dates: start: 20110101
  4. SOLOSTAR [Suspect]
     Indication: DEVICE THERAPY
     Dates: start: 20110101

REACTIONS (2)
  - OFF LABEL USE [None]
  - CONVULSION [None]
